FAERS Safety Report 19654130 (Version 1)
Quarter: 2021Q3

REPORT INFORMATION
  Report Type: Spontaneous
  Country: FR (occurrence: FR)
  Receive Date: 20210804
  Receipt Date: 20210804
  Transmission Date: 20211014
  Serious: Yes (Other)
  Sender: FDA-Public Use
  Company Number: FR-AUROBINDO-AUR-APL-2021-033209

PATIENT

DRUGS (8)
  1. REMIFENTANIL [Suspect]
     Active Substance: REMIFENTANIL
     Indication: PRODUCT USED FOR UNKNOWN INDICATION
     Dosage: POSOLOGIE NR
     Route: 065
     Dates: start: 20210716
  2. BETADINE [Suspect]
     Active Substance: POVIDONE-IODINE
     Indication: PRODUCT USED FOR UNKNOWN INDICATION
     Dosage: UNK
     Route: 065
     Dates: start: 20210716
  3. PROPOFOL. [Suspect]
     Active Substance: PROPOFOL
     Indication: PRODUCT USED FOR UNKNOWN INDICATION
     Dosage: POSOLOGIE NR
     Route: 042
     Dates: start: 20210716
  4. VANCOMYCINE [Suspect]
     Active Substance: VANCOMYCIN
     Indication: PRODUCT USED FOR UNKNOWN INDICATION
     Dosage: POSOLOGIE NR
     Route: 065
     Dates: start: 20210716
  5. PARACETAMOL [Suspect]
     Active Substance: ACETAMINOPHEN
     Indication: PRODUCT USED FOR UNKNOWN INDICATION
     Dosage: POSOLOGIE NR
     Route: 065
     Dates: start: 20210716
  6. CELOCURINE [Suspect]
     Active Substance: SUCCINYLCHOLINE
     Indication: PRODUCT USED FOR UNKNOWN INDICATION
     Dosage: UNK
     Route: 065
     Dates: start: 20210716
  7. PENTOTHAL [Suspect]
     Active Substance: THIOPENTAL SODIUM
     Indication: PRODUCT USED FOR UNKNOWN INDICATION
     Dosage: 2.5%
     Route: 065
     Dates: start: 20210716, end: 20210716
  8. NIMBEX [Suspect]
     Active Substance: CISATRACURIUM BESYLATE
     Indication: PRODUCT USED FOR UNKNOWN INDICATION
     Dosage: POSOLOGIE NR
     Route: 040
     Dates: start: 20210716

REACTIONS (1)
  - Anaphylactic reaction [Recovering/Resolving]

NARRATIVE: CASE EVENT DATE: 20210716
